FAERS Safety Report 4406536-1 (Version None)
Quarter: 2004Q3

REPORT INFORMATION
  Report Type: 
  Country: None (occurrence: None)
  Receive Date: 20040723
  Receipt Date: 20040210
  Transmission Date: 20050211
  Serious: Yes (Other)
  Sender: FDA-Public Use
  Company Number: US-ROCHE-358616

PATIENT
  Age: 15 Year
  Sex: Female
  Weight: 59 kg

DRUGS (1)
  1. ACCUTANE [Suspect]
     Indication: ACNE
     Route: 048
     Dates: start: 20030627, end: 20040118

REACTIONS (3)
  - BENIGN INTRACRANIAL HYPERTENSION [None]
  - OPTIC NEURITIS [None]
  - VISUAL DISTURBANCE [None]
